FAERS Safety Report 9015278 (Version 1)
Quarter: 2013Q1

REPORT INFORMATION
  Report Type: Spontaneous
  Country: CA (occurrence: CA)
  Receive Date: 20130116
  Receipt Date: 20130116
  Transmission Date: 20140127
  Serious: No
  Sender: FDA-Public Use
  Company Number: CA-ELI_LILLY_AND_COMPANY-CA201301002287

PATIENT
  Age: 12 Year
  Sex: Male
  Weight: 45.35 kg

DRUGS (1)
  1. STRATTERA [Suspect]
     Dosage: 25 MG, UNK

REACTIONS (2)
  - Abdominal pain upper [Unknown]
  - Headache [Unknown]
